APPROVED DRUG PRODUCT: HYDROCODONE BITARTRATE AND ACETAMINOPHEN
Active Ingredient: ACETAMINOPHEN; HYDROCODONE BITARTRATE
Strength: 325MG;7.5MG
Dosage Form/Route: TABLET;ORAL
Application: A040432 | Product #001
Applicant: CHARTWELL SCHEDULED LLC
Approved: Jan 22, 2003 | RLD: No | RS: No | Type: DISCN